FAERS Safety Report 9530206 (Version 1)
Quarter: 2013Q3

REPORT INFORMATION
  Report Type: Spontaneous
  Country: IT (occurrence: FR)
  Receive Date: 20130917
  Receipt Date: 20130917
  Transmission Date: 20140515
  Serious: Yes (Hospitalization)
  Sender: FDA-Public Use
  Company Number: FR-FRI-1000048806

PATIENT
  Age: 82 Year
  Sex: Female
  Weight: 87 kg

DRUGS (9)
  1. NEBIVOLOL [Suspect]
     Indication: HYPERTENSION
     Dosage: 5 MG
     Route: 048
     Dates: end: 20130730
  2. NEBIVOLOL [Suspect]
     Dates: start: 20130813, end: 20130819
  3. COTAREG [Concomitant]
     Indication: HYPERTENSION
     Route: 048
  4. KARDEGIC [Concomitant]
     Indication: PROPHYLAXIS
     Dosage: 75 MG
     Route: 048
  5. ATARAX [Concomitant]
     Indication: ANXIETY
     Dosage: 50 MG
     Route: 048
  6. VENTOLINE [Concomitant]
     Indication: ASTHMA
     Route: 055
  7. LASILIX [Concomitant]
     Indication: HYPERTENSION
     Dosage: 40 MG
     Route: 048
  8. TRAMADOL HYDROCHLORIDE [Concomitant]
     Indication: PAIN
     Dosage: 100 MG
     Route: 048
  9. CETIRIZINE DIHYDROCHLORIDE [Concomitant]
     Indication: ASTHMA
     Route: 048

REACTIONS (2)
  - Dermatitis exfoliative [Recovering/Resolving]
  - Hypotension [Unknown]
